FAERS Safety Report 7305302-7 (Version None)
Quarter: 2011Q1

REPORT INFORMATION
  Report Type: 
  Country: None (occurrence: None)
  Receive Date: 20110210
  Receipt Date: 20110127
  Transmission Date: 20110831
  Serious: Yes (Hospitalization, Other)
  Sender: FDA-Public Use
  Company Number: 009903

PATIENT
  Sex: Female
  Weight: 73 kg

DRUGS (5)
  1. LACOSAMIDE [Suspect]
     Indication: EPILEPSY
     Dosage: (100 MG BID ORAL) (200 MG, 50 MG MORNINGS AND MIDDAY, 100 MG EVENINGS)
     Route: 048
     Dates: start: 20100323
  2. LACOSAMIDE [Suspect]
     Indication: EPILEPSY
     Dosage: (100 MG BID ORAL) (200 MG, 50 MG MORNINGS AND MIDDAY, 100 MG EVENINGS)
     Route: 048
     Dates: start: 20090827, end: 20100322
  3. LEVETIRACETAM [Suspect]
     Indication: EPILEPSY
     Dosage: (1500 MG BID ORAL) (2500 MG, 500MG EVENINGS, 1000MG MORNINGS AND EVENINGS ORAL) (1000 MG TID ORAL)
     Route: 048
     Dates: end: 20100301
  4. LEVETIRACETAM [Suspect]
     Indication: EPILEPSY
     Dosage: (1500 MG BID ORAL) (2500 MG, 500MG EVENINGS, 1000MG MORNINGS AND EVENINGS ORAL) (1000 MG TID ORAL)
     Route: 048
     Dates: start: 20100323
  5. LEVETIRACETAM [Suspect]
     Indication: EPILEPSY
     Dosage: (1500 MG BID ORAL) (2500 MG, 500MG EVENINGS, 1000MG MORNINGS AND EVENINGS ORAL) (1000 MG TID ORAL)
     Route: 048
     Dates: start: 20090101, end: 20090322

REACTIONS (7)
  - TREATMENT FAILURE [None]
  - AMNESIA [None]
  - WHIPLASH INJURY [None]
  - PREGNANCY [None]
  - ROAD TRAFFIC ACCIDENT [None]
  - DRUG EXPOSURE DURING PREGNANCY [None]
  - CONCUSSION [None]
